FAERS Safety Report 17392828 (Version 1)
Quarter: 2020Q1

REPORT INFORMATION
  Report Type: Spontaneous
  Country: GB (occurrence: GB)
  Receive Date: 20200207
  Receipt Date: 20200207
  Transmission Date: 20200409
  Serious: Yes (Other)
  Sender: FDA-Public Use
  Company Number: GB-FERRINGPH-2020FE00542

PATIENT
  Age: 64 Year
  Sex: Female

DRUGS (4)
  1. PICOLAX (ANHYDROUS CITRIC ACID\MAGNESIUM OXIDE\SODIUM PICOSULFATE) [Suspect]
     Active Substance: ANHYDROUS CITRIC ACID\MAGNESIUM OXIDE\SODIUM PICOSULFATE
     Indication: BOWEL PREPARATION
     Dosage: 2 DF (3 HOURS APART)
     Route: 065
     Dates: start: 20200126, end: 20200126
  2. BISACODYL. [Concomitant]
     Active Substance: BISACODYL
     Dosage: 2 TABLETS SATURDAY EVENING, 2 TABLETS SUNDAY MORNING, 2 TABLETS SUNDAY AT 9 PM
     Route: 065
     Dates: start: 20200125
  3. PICOLAX (ANHYDROUS CITRIC ACID\MAGNESIUM OXIDE\SODIUM PICOSULFATE) [Suspect]
     Active Substance: ANHYDROUS CITRIC ACID\MAGNESIUM OXIDE\SODIUM PICOSULFATE
     Dosage: UNK
     Route: 065
  4. PICOLAX (ANHYDROUS CITRIC ACID\MAGNESIUM OXIDE\SODIUM PICOSULFATE) [Suspect]
     Active Substance: ANHYDROUS CITRIC ACID\MAGNESIUM OXIDE\SODIUM PICOSULFATE
     Dosage: UNK
     Route: 065
     Dates: start: 201911

REACTIONS (3)
  - Syncope [Unknown]
  - Product use issue [Recovered/Resolved]
  - Dehydration [Recovered/Resolved]

NARRATIVE: CASE EVENT DATE: 201911
